FAERS Safety Report 14593607 (Version 7)
Quarter: 2020Q4

REPORT INFORMATION
  Report Type: Spontaneous
  Country: PT (occurrence: PT)
  Receive Date: 20180302
  Receipt Date: 20201106
  Transmission Date: 20210113
  Serious: Yes (Death, Hospitalization, Other)
  Sender: FDA-Public Use
  Company Number: PT-JNJFOC-20180238421

PATIENT
  Age: 44 Year
  Sex: Female

DRUGS (6)
  1. ADALIMUMAB [Suspect]
     Active Substance: ADALIMUMAB
     Indication: CROHN^S DISEASE
     Route: 058
  2. AZATHIOPRINE. [Suspect]
     Active Substance: AZATHIOPRINE
     Indication: CROHN^S DISEASE
     Route: 065
  3. REMICADE [Suspect]
     Active Substance: INFLIXIMAB
     Indication: CROHN^S DISEASE
     Route: 042
  4. MESALAZINE [Suspect]
     Active Substance: MESALAMINE
     Indication: CROHN^S DISEASE
     Route: 065
  5. REMICADE [Suspect]
     Active Substance: INFLIXIMAB
     Indication: CROHN^S DISEASE
  6. REMICADE [Suspect]
     Active Substance: INFLIXIMAB
     Indication: ANAL ABSCESS

REACTIONS (15)
  - Malignant transformation [Unknown]
  - Anal fistula [Unknown]
  - Disease recurrence [Unknown]
  - Anal cancer [Unknown]
  - Disease progression [Fatal]
  - Crohn^s disease [Not Recovered/Not Resolved]
  - Papilloma viral infection [Unknown]
  - Product use in unapproved indication [Unknown]
  - Sepsis [Recovered/Resolved]
  - Abscess [Recovered/Resolved]
  - Treatment noncompliance [Unknown]
  - Drug ineffective [Recovered/Resolved]
  - Anal squamous cell carcinoma [Unknown]
  - Off label use [Unknown]
  - Crohn^s disease [Recovering/Resolving]
